APPROVED DRUG PRODUCT: HYDROCODONE BITARTRATE AND ACETAMINOPHEN
Active Ingredient: ACETAMINOPHEN; HYDROCODONE BITARTRATE
Strength: 325MG;10MG
Dosage Form/Route: TABLET;ORAL
Application: A209958 | Product #004
Applicant: ALVOGEN INC
Approved: Oct 24, 2018 | RLD: No | RS: No | Type: DISCN